FAERS Safety Report 19695907 (Version 1)
Quarter: 2021Q3

REPORT INFORMATION
  Report Type: Spontaneous
  Country: CA (occurrence: CA)
  Receive Date: 20210812
  Receipt Date: 20210812
  Transmission Date: 20211014
  Serious: Yes (Other)
  Sender: FDA-Public Use
  Company Number: CA-GREER LABORATORIES, INC.-2114961

PATIENT
  Age: 38 Year
  Sex: Male

DRUGS (10)
  1. POLLENS ? TREES, TREE MIX 11 [Suspect]
     Active Substance: ACER SACCHARUM POLLEN\BETULA NIGRA POLLEN\CARYA OVATA POLLEN\FAGUS GRANDIFOLIA POLLEN\FRAXINUS AMERICANA POLLEN\JUGLANS NIGRA POLLEN\PLATANUS OCCIDENTALIS POLLEN\POPULUS DELTOIDES POLLEN\QUERCUS RUBRA POLLEN\SALIX NIGRA POLLEN\ULMUS AMERICANA POLLEN
     Indication: CONJUNCTIVITIS
     Route: 058
  2. STANDARDIZED TIMOTHY GRASS POLLEN [Suspect]
     Active Substance: PHLEUM PRATENSE POLLEN
     Route: 058
  3. DILUENT, NORMAL SALINE [Suspect]
     Active Substance: SODIUM CHLORIDE
     Route: 058
  4. ALLERGENIC EXTRACT? BLUEGRASS, KENTUCKY JUNE POA PRATENSIS [Suspect]
     Active Substance: POA PRATENSIS POLLEN
     Route: 058
  5. ALLERGENIC EXTRACT? ORCHARD GRASS DACTYLIS GLOMERATA [Suspect]
     Active Substance: DACTYLIS GLOMERATA POLLEN
     Route: 058
  6. POLLENS ? WEEDS AND GARDEN PLANTS, RAGWEED, MIXED AMBROSIA [Suspect]
     Active Substance: AMBROSIA ARTEMISIIFOLIA POLLEN\AMBROSIA TRIFIDA POLLEN
     Route: 058
  7. POLLENS ? WEEDS AND GARDEN PLANTS, RAGWEED, MIXED AMBROSIA [Suspect]
     Active Substance: AMBROSIA ARTEMISIIFOLIA POLLEN\AMBROSIA TRIFIDA POLLEN
     Route: 058
  8. PAXIL [Concomitant]
     Active Substance: PAROXETINE HYDROCHLORIDE
     Route: 048
  9. ALLERGENIC EXTRACT? REDTOP AGROSTIS ALBA [Suspect]
     Active Substance: AGROSTIS GIGANTEA POLLEN
     Route: 058
  10. DILUENT, NORMAL SALINE [Suspect]
     Active Substance: SODIUM CHLORIDE
     Route: 058

REACTIONS (6)
  - Rash [Unknown]
  - Throat tightness [Unknown]
  - Headache [Unknown]
  - Flushing [Unknown]
  - Disorientation [Unknown]
  - Muscle tightness [Unknown]

NARRATIVE: CASE EVENT DATE: 20210504
